FAERS Safety Report 23440533 (Version 1)
Quarter: 2024Q1

REPORT INFORMATION
  Report Type: Spontaneous
  Country: JP (occurrence: JP)
  Receive Date: 20240125
  Receipt Date: 20240125
  Transmission Date: 20240409
  Serious: Yes (Hospitalization, Other)
  Sender: FDA-Public Use
  Company Number: JP-002147023-NVSJ2024JP001196

PATIENT
  Age: 95 Year
  Sex: Female
  Weight: 46 kg

DRUGS (7)
  1. ENTRESTO [Suspect]
     Active Substance: SACUBITRIL\VALSARTAN
     Indication: Cardiac failure
     Dosage: 200 MG
     Route: 048
  2. SAMSCA [Suspect]
     Active Substance: TOLVAPTAN
     Indication: Product used for unknown indication
     Dosage: 15 MG
     Route: 065
  3. EDOXABAN TOSYLATE [Concomitant]
     Active Substance: EDOXABAN TOSYLATE
     Indication: Product used for unknown indication
     Dosage: 15 MG
     Route: 065
  4. EPLERENONE [Concomitant]
     Active Substance: EPLERENONE
     Indication: Product used for unknown indication
     Dosage: 25 MG
     Route: 065
  5. ROSUVASTATIN [Concomitant]
     Active Substance: ROSUVASTATIN
     Indication: Product used for unknown indication
     Dosage: 2.5 MG
     Route: 065
  6. LANSOPRAZOLE [Concomitant]
     Active Substance: LANSOPRAZOLE
     Indication: Product used for unknown indication
     Dosage: 15 MG
     Route: 065
  7. DAPRODUSTAT [Concomitant]
     Active Substance: DAPRODUSTAT
     Indication: Product used for unknown indication
     Dosage: 2 MG
     Route: 065

REACTIONS (7)
  - Cardiac failure [Unknown]
  - Pleural effusion [Unknown]
  - Oxygen saturation decreased [Unknown]
  - Dyspnoea [Unknown]
  - Oedema peripheral [Unknown]
  - Cataract [Unknown]
  - Pollakiuria [Unknown]
